FAERS Safety Report 24329497 (Version 2)
Quarter: 2024Q4

REPORT INFORMATION
  Report Type: Spontaneous
  Country: US (occurrence: US)
  Receive Date: 20240917
  Receipt Date: 20241214
  Transmission Date: 20250114
  Serious: No
  Sender: NOVARTIS
  Company Number: US-002147023-NVSC2024US184616

PATIENT
  Sex: Female

DRUGS (1)
  1. COSENTYX [Suspect]
     Active Substance: SECUKINUMAB
     Indication: Product used for unknown indication
     Dosage: 300 MG, QMO (1X/MONTH)
     Route: 065

REACTIONS (4)
  - Injection site injury [Unknown]
  - Product leakage [Unknown]
  - Needle issue [Unknown]
  - Product dose omission issue [Unknown]
